FAERS Safety Report 16388515 (Version 1)
Quarter: 2019Q2

REPORT INFORMATION
  Report Type: Spontaneous
  Country: CN (occurrence: CN)
  Receive Date: 20190604
  Receipt Date: 20190604
  Transmission Date: 20190711
  Serious: Yes (Other)
  Sender: FDA-Public Use
  Company Number: CN-EPIC PHARMA LLC-2019EPC00145

PATIENT
  Age: 62 Year
  Sex: Female

DRUGS (10)
  1. ROPIVACAINE. [Suspect]
     Active Substance: ROPIVACAINE HYDROCHLORIDE
     Dosage: LESS THAN OR EQUAL TO 15 MG PER DAY
  2. MORPHINE SULFATE. [Suspect]
     Active Substance: MORPHINE SULFATE
     Dosage: 45 MG/DAY
     Route: 037
  3. ROPIVACAINE. [Suspect]
     Active Substance: ROPIVACAINE HYDROCHLORIDE
     Dosage: 1.0 ML/H; 1.5 ML BOLUS INJECTION WITH 1-HOUR LOCKOUT
     Route: 037
  4. ROPIVACAINE. [Suspect]
     Active Substance: ROPIVACAINE HYDROCHLORIDE
     Dosage: 22.5 MG/DAY
     Route: 037
  5. ROPIVACAINE. [Suspect]
     Active Substance: ROPIVACAINE HYDROCHLORIDE
     Dosage: REDUCED TO HALF; 11.25 MG/DAY
  6. MORPHINE SULFATE. [Suspect]
     Active Substance: MORPHINE SULFATE
     Dosage: BELOW 30 MG PER DAY
  7. MORPHINE SULFATE. [Suspect]
     Active Substance: MORPHINE SULFATE
     Indication: PAIN
     Dosage: 1 MG/ML; WITH 1 ML BOLUS INJECTION WITH 2-HOUR LOCKOUT [3 MG PER DAY AT FIRST THEN GRADUALLY INCREAS
     Route: 037
  8. MORPHINE SULFATE. [Suspect]
     Active Substance: MORPHINE SULFATE
     Dosage: 12 MG/D [1 MONTH LATER]
     Route: 037
  9. MORPHINE SULFATE. [Suspect]
     Active Substance: MORPHINE SULFATE
     Dosage: REDUCED TO HALF; 22.5 MG/D
  10. ROPIVACAINE. [Suspect]
     Active Substance: ROPIVACAINE HYDROCHLORIDE
     Indication: PAIN
     Dosage: 1.25 MG/ML; CONTINUOUS INFUSION 0.2 MG/H; BOLUS 1 ML WITH 1-HOUR LOKOUT
     Route: 037

REACTIONS (1)
  - Myoclonus [Recovered/Resolved]
